FAERS Safety Report 20930741 (Version 5)
Quarter: 2022Q3

REPORT INFORMATION
  Report Type: Report from Study
  Country: US (occurrence: US)
  Receive Date: 20220608
  Receipt Date: 20220701
  Transmission Date: 20221026
  Serious: No
  Sender: FDA-Public Use
  Company Number: US-NOVARTISTESTPH-NVSC2022US131382

PATIENT
  Age: 59 Year
  Sex: Male

DRUGS (1)
  1. ENTRESTO [Suspect]
     Active Substance: SACUBITRIL\VALSARTAN
     Indication: Product used for unknown indication
     Dosage: 1 DOSAGE FORM, BID, (49/51 MG)
     Route: 065
     Dates: start: 2017

REACTIONS (7)
  - COVID-19 [Recovering/Resolving]
  - Dysgeusia [Unknown]
  - Cough [Unknown]
  - Weight decreased [Unknown]
  - Diarrhoea [Unknown]
  - Decreased activity [Unknown]
  - Throat clearing [Unknown]

NARRATIVE: CASE EVENT DATE: 20220501
